FAERS Safety Report 17892193 (Version 3)
Quarter: 2022Q2

REPORT INFORMATION
  Report Type: Spontaneous
  Country: GB (occurrence: GB)
  Receive Date: 20200613
  Receipt Date: 20220421
  Transmission Date: 20220721
  Serious: Yes (Hospitalization, Disabling, Other)
  Sender: FDA-Public Use
  Company Number: GB-ACCORD-183274

PATIENT
  Age: 13 Year
  Sex: Female

DRUGS (3)
  1. TRANEXAMIC ACID [Suspect]
     Active Substance: TRANEXAMIC ACID
     Indication: Craniosynostosis
     Dosage: 10 MILLIGRAM/KILOGRAM
     Route: 040
  2. TRANEXAMIC ACID [Suspect]
     Active Substance: TRANEXAMIC ACID
     Indication: Surgery
  3. TRANEXAMIC ACID [Suspect]
     Active Substance: TRANEXAMIC ACID
     Indication: Haemorrhage prophylaxis

REACTIONS (4)
  - Retinal artery occlusion [Not Recovered/Not Resolved]
  - Off label use [Unknown]
  - Blindness unilateral [Not Recovered/Not Resolved]
  - Blindness [Not Recovered/Not Resolved]
